FAERS Safety Report 14034397 (Version 1)
Quarter: 2017Q4

REPORT INFORMATION
  Report Type: Spontaneous
  Country: BE (occurrence: BE)
  Receive Date: 20171003
  Receipt Date: 20171003
  Transmission Date: 20180321
  Serious: Yes (Other)
  Sender: FDA-Public Use
  Company Number: BE-JNJFOC-20170927733

PATIENT
  Age: 6 Decade
  Sex: Male

DRUGS (5)
  1. 5-ASA [Concomitant]
     Active Substance: MESALAMINE
     Indication: PRODUCT USED FOR UNKNOWN INDICATION
     Route: 048
     Dates: start: 201105
  2. AZATHIOPRINE. [Concomitant]
     Active Substance: AZATHIOPRINE
     Route: 065
     Dates: start: 201105
  3. METHOTREXATE. [Concomitant]
     Active Substance: METHOTREXATE
     Route: 065
     Dates: start: 201105
  4. 5-ASA [Concomitant]
     Active Substance: MESALAMINE
     Route: 065
     Dates: start: 201105
  5. REMICADE [Suspect]
     Active Substance: INFLIXIMAB
     Indication: COLITIS ULCERATIVE
     Route: 042
     Dates: start: 201105

REACTIONS (4)
  - Colitis ulcerative [Unknown]
  - Diabetes mellitus [Unknown]
  - Infusion related reaction [Unknown]
  - Exomphalos [Unknown]

NARRATIVE: CASE EVENT DATE: 201106
